FAERS Safety Report 22327940 (Version 2)
Quarter: 2024Q2

REPORT INFORMATION
  Report Type: Spontaneous
  Country: US (occurrence: US)
  Receive Date: 20230516
  Receipt Date: 20240531
  Transmission Date: 20240715
  Serious: No
  Sender: FDA-Public Use
  Company Number: US-RADIUS HEALTH INC.-2023US000789

PATIENT
  Age: 71 Year
  Sex: Male

DRUGS (4)
  1. TYMLOS [Suspect]
     Active Substance: ABALOPARATIDE
     Indication: Osteoporosis
     Dosage: 80 MCG, QD
     Route: 058
     Dates: start: 20230210
  2. AMLODIPINE [Concomitant]
     Active Substance: AMLODIPINE BESYLATE
     Indication: Product used for unknown indication
  3. BREO ELLIPTA [Concomitant]
     Active Substance: FLUTICASONE FUROATE\VILANTEROL TRIFENATATE
     Indication: Product used for unknown indication
  4. VENTOLIN [Concomitant]
     Active Substance: ALBUTEROL SULFATE
     Indication: Product used for unknown indication

REACTIONS (10)
  - Heart rate increased [Unknown]
  - Arrhythmia [Recovering/Resolving]
  - Pulse abnormal [Unknown]
  - Blood pressure increased [Unknown]
  - Feeling abnormal [Unknown]
  - Palpitations [Unknown]
  - Headache [Unknown]
  - Insomnia [Unknown]
  - Product dose omission issue [Unknown]
  - Injection site bruising [Unknown]

NARRATIVE: CASE EVENT DATE: 20230201
